FAERS Safety Report 21018758 (Version 1)
Quarter: 2022Q2

REPORT INFORMATION
  Report Type: Spontaneous
  Country: None (occurrence: TR)
  Receive Date: 20220628
  Receipt Date: 20220628
  Transmission Date: 20220721
  Serious: No
  Sender: FDA-Public Use
  Company Number: TR-QOL Medical, LLC-2130363

PATIENT

DRUGS (1)
  1. SUCRAID [Suspect]
     Active Substance: SACROSIDASE
     Indication: Sucrase-isomaltase deficiency
     Route: 048

REACTIONS (3)
  - Crying [Recovered/Resolved]
  - Crying [Recovered/Resolved]
  - Irritability [Recovered/Resolved]
